FAERS Safety Report 7053066-7 (Version None)
Quarter: 2010Q4

REPORT INFORMATION
  Report Type: 
  Country: None (occurrence: None)
  Receive Date: 20101020
  Receipt Date: 20101005
  Transmission Date: 20110411
  Serious: Yes (Other)
  Sender: FDA-Public Use
  Company Number: US-ELI_LILLY_AND_COMPANY-US201006003012

PATIENT
  Sex: Female

DRUGS (9)
  1. FORTEO [Suspect]
     Indication: OSTEOPOROSIS
     Dosage: 20 UG, DAILY (1/D)
     Dates: start: 20100512
  2. FORTEO [Suspect]
     Dosage: 20 UG, DAILY (1/D)
  3. LEXAPRO [Concomitant]
     Dosage: 25 MG, DAILY (1/D)
  4. KLONOPIN [Concomitant]
     Dosage: 1 MG, EACH MORNING
  5. KLONOPIN [Concomitant]
     Dosage: 0.5 MG, EACH EVENING
  6. XANAX [Concomitant]
     Dosage: 0.5 MG, EACH EVENING
  7. LIPITOR [Concomitant]
     Dosage: 40 MG, DAILY (1/D)
  8. ASPIRIN [Concomitant]
     Dosage: 81 MG, DAILY (1/D)
  9. CALTRATE PLUS [Concomitant]
     Dosage: UNK, DAILY (1/D)

REACTIONS (12)
  - ANXIETY [None]
  - APATHY [None]
  - DEPRESSION [None]
  - DIPLOPIA [None]
  - FATIGUE [None]
  - GRIEF REACTION [None]
  - HUNGER [None]
  - HYPERSOMNIA RELATED TO ANOTHER MENTAL CONDITION [None]
  - HYPERTENSION [None]
  - INCORRECT DOSE ADMINISTERED [None]
  - PAIN [None]
  - PANIC ATTACK [None]
